FAERS Safety Report 16353029 (Version 3)
Quarter: 2019Q3

REPORT INFORMATION
  Report Type: Spontaneous
  Country: BR (occurrence: BR)
  Receive Date: 20190524
  Receipt Date: 20190829
  Transmission Date: 20191004
  Serious: Yes (Death, Hospitalization, Other)
  Sender: FDA-Public Use
  Company Number: BR-PFIZER INC-2019218036

PATIENT
  Age: 68 Year
  Sex: Male

DRUGS (1)
  1. SUTENT [Suspect]
     Active Substance: SUNITINIB MALATE
     Indication: PAPILLARY RENAL CELL CARCINOMA
     Dosage: 50 MG, CYCLIC (1 CAPSULE PER DAY, 28 DAYS ON, 14 DAYS OFF)
     Route: 048
     Dates: start: 20190413, end: 20190510

REACTIONS (16)
  - Acute respiratory failure [Fatal]
  - Neoplasm progression [Fatal]
  - Condition aggravated [Unknown]
  - Renal failure [Unknown]
  - Asthenia [Unknown]
  - Anaemia [Unknown]
  - Upper gastrointestinal haemorrhage [Unknown]
  - Dyspnoea [Unknown]
  - Vomiting [Unknown]
  - Urine output decreased [Unknown]
  - Infrequent bowel movements [Unknown]
  - Ascites [Unknown]
  - Discoloured vomit [Unknown]
  - Decreased appetite [Unknown]
  - Oedema peripheral [Unknown]
  - Epistaxis [Unknown]

NARRATIVE: CASE EVENT DATE: 2019
